FAERS Safety Report 5482468-5 (Version None)
Quarter: 2007Q4

REPORT INFORMATION
  Report Type: 
  Country: None (occurrence: None)
  Receive Date: 20071011
  Receipt Date: 20071003
  Transmission Date: 20080405
  Serious: Yes (Other)
  Sender: FDA-Public Use
  Company Number: US-ASTRAZENECA-2007UW23032

PATIENT
  Age: 68 Year
  Sex: Female
  Weight: 77.1 kg

DRUGS (8)
  1. ARIMIDEX [Suspect]
     Indication: BREAST CANCER
     Route: 048
     Dates: start: 20030101
  2. TAMOXIFEN CITRATE [Concomitant]
  3. LEVOTHYROXINE SODIUM [Concomitant]
  4. TRAZODONE HCL [Concomitant]
  5. NEXIUM [Concomitant]
     Route: 048
  6. GREEN TEA [Concomitant]
  7. MULTI-VITAMIN [Concomitant]
  8. ASPIRIN [Concomitant]

REACTIONS (11)
  - ARTHROPATHY [None]
  - DEPRESSION [None]
  - FRACTURE [None]
  - HOT FLUSH [None]
  - HYPERTENSION [None]
  - LYMPHOEDEMA [None]
  - MOOD ALTERED [None]
  - OEDEMA PERIPHERAL [None]
  - OSTEOPOROSIS [None]
  - VAGINAL HAEMORRHAGE [None]
  - WEIGHT DECREASED [None]
